FAERS Safety Report 8154720-6 (Version None)
Quarter: 2012Q1

REPORT INFORMATION
  Report Type: 
  Country: None (occurrence: None)
  Receive Date: 20120221
  Receipt Date: 20120207
  Transmission Date: 20120608
  Serious: Yes (Other)
  Sender: FDA-Public Use
  Company Number: PHHY2012NZ011336

PATIENT
  Sex: Male

DRUGS (2)
  1. CLOZARIL [Suspect]
     Indication: SCHIZOPHRENIA
     Dates: start: 19960730
  2. CLOZARIL [Suspect]
     Dosage: 175 MG, UNK
     Dates: start: 20120110

REACTIONS (6)
  - N-TERMINAL PROHORMONE BRAIN NATRIURETIC PEPTIDE INCREASED [None]
  - BLOOD POTASSIUM INCREASED [None]
  - MEAN PLATELET VOLUME INCREASED [None]
  - HAEMOGLOBIN DECREASED [None]
  - C-REACTIVE PROTEIN INCREASED [None]
  - ANTIPSYCHOTIC DRUG LEVEL BELOW THERAPEUTIC [None]
